FAERS Safety Report 8197949-3 (Version None)
Quarter: 2012Q1

REPORT INFORMATION
  Report Type: 
  Country: None (occurrence: None)
  Receive Date: 20120309
  Receipt Date: 20111202
  Transmission Date: 20120608
  Serious: Yes (Other)
  Sender: FDA-Public Use
  Company Number: US-AMGEN-USASP2011064206

PATIENT
  Age: 76 Year
  Sex: Male

DRUGS (4)
  1. CALCIUM [Concomitant]
     Route: 042
  2. CASODEX [Concomitant]
  3. XGEVA [Suspect]
     Indication: METASTASES TO BONE
     Dosage: 120 MG, Q4WK
     Dates: start: 20110101
  4. LUPRON [Concomitant]

REACTIONS (1)
  - HYPOCALCAEMIA [None]
